FAERS Safety Report 16743053 (Version 4)
Quarter: 2020Q1

REPORT INFORMATION
  Report Type: Report from Study
  Country: None (occurrence: US)
  Receive Date: 20190827
  Receipt Date: 20200219
  Transmission Date: 20200409
  Serious: Yes (Other)
  Sender: FDA-Public Use
  Company Number: US-ABBVIE-19K-163-2621627-00

PATIENT
  Age: 66 Year
  Sex: Male
  Weight: 125.53 kg

DRUGS (8)
  1. HUMIRA [Suspect]
     Active Substance: ADALIMUMAB
     Route: 058
  2. METFORMIN ER [Concomitant]
     Active Substance: METFORMIN HYDROCHLORIDE
     Indication: DIABETES MELLITUS
  3. LOSARTAN. [Concomitant]
     Active Substance: LOSARTAN
     Indication: HYPERTENSION
  4. HUMIRA [Suspect]
     Active Substance: ADALIMUMAB
     Route: 058
  5. METHOTREXATE. [Concomitant]
     Active Substance: METHOTREXATE
     Indication: PSORIATIC ARTHROPATHY
     Dosage: 4 TABLETS
  6. FOLIC ACID. [Concomitant]
     Active Substance: FOLIC ACID
     Indication: PRODUCT USED FOR UNKNOWN INDICATION
  7. HUMIRA [Suspect]
     Active Substance: ADALIMUMAB
     Indication: PSORIATIC ARTHROPATHY
     Dosage: ABOUT 5 YEARS AGO
     Route: 058
     Dates: start: 2015
  8. HUMIRA [Suspect]
     Active Substance: ADALIMUMAB
     Route: 058

REACTIONS (17)
  - C-reactive protein increased [Unknown]
  - Red cell distribution width increased [Unknown]
  - Discomfort [Unknown]
  - Psoriasis [Recovered/Resolved]
  - Abdominal discomfort [Unknown]
  - Osteoarthritis [Not Recovered/Not Resolved]
  - Weight decreased [Unknown]
  - Blood sodium decreased [Unknown]
  - Psoriatic arthropathy [Not Recovered/Not Resolved]
  - Red blood cell sedimentation rate increased [Unknown]
  - Blood glucose increased [Unknown]
  - Glycosylated haemoglobin increased [Unknown]
  - Psoriasis [Recovered/Resolved]
  - Osteoarthropathy [Not Recovered/Not Resolved]
  - Osteoarthritis [Unknown]
  - Type 2 diabetes mellitus [Not Recovered/Not Resolved]
  - Psoriasis [Recovered/Resolved]

NARRATIVE: CASE EVENT DATE: 20171026
